FAERS Safety Report 6587086-3 (Version None)
Quarter: 2010Q1

REPORT INFORMATION
  Report Type: 
  Country: None (occurrence: None)
  Receive Date: 20100217
  Receipt Date: 20090416
  Transmission Date: 20100710
  Serious: Yes (Hospitalization)
  Sender: FDA-Public Use
  Company Number: US-ALLERGAN-0905328US

PATIENT
  Age: 43 Year
  Sex: Female

DRUGS (5)
  1. BOTOX [Suspect]
     Indication: HEAD TITUBATION
     Dosage: 200 UNITS, SINGLE
     Route: 030
     Dates: start: 20090407, end: 20090407
  2. BOTOX [Suspect]
     Dosage: 200 UNITS, SINGLE
     Route: 030
     Dates: start: 20081001, end: 20081001
  3. BOTOX [Suspect]
     Dosage: 200 UNITS, SINGLE
     Route: 030
     Dates: start: 20090101, end: 20090101
  4. KLONOPIN [Concomitant]
     Indication: TREMOR
     Route: 048
  5. PROPRANOLOL XL [Concomitant]
     Indication: TREMOR
     Dosage: 60 MG, QD
     Route: 048

REACTIONS (6)
  - COUGH [None]
  - DEHYDRATION [None]
  - DIZZINESS [None]
  - DYSPHAGIA [None]
  - DYSPHONIA [None]
  - TONGUE PARALYSIS [None]
